FAERS Safety Report 22059638 (Version 1)
Quarter: 2023Q1

REPORT INFORMATION
  Report Type: Spontaneous
  Country: US (occurrence: None)
  Receive Date: 20230303
  Receipt Date: 20230303
  Transmission Date: 20230417
  Serious: Yes (Other)
  Sender: FDA-Public Use
  Company Number: None

PATIENT
  Sex: Female

DRUGS (11)
  1. PROLIA [Suspect]
     Active Substance: DENOSUMAB
     Indication: Osteoporosis
     Dosage: OTHER FREQUENCY : EVERY 6 MONTHS;?
     Route: 058
     Dates: start: 20210831
  2. BUPROPION TAB [Concomitant]
  3. DIHEN/ATROP TAB [Concomitant]
  4. GABAPENTIN [Concomitant]
     Active Substance: GABAPENTIN
  5. MULTIVITAMIN CAP [Concomitant]
  6. OXYBUTYNIN TAB ER [Concomitant]
  7. PEPCID CHW COMPLETE [Concomitant]
  8. SERTRALINE HYDROCHLORIDE [Concomitant]
     Active Substance: SERTRALINE HYDROCHLORIDE
  9. TYLENOL 8 HR TAB [Concomitant]
  10. VITAMIN C TAB [Concomitant]
  11. VITAMIN D3 CAP [Concomitant]

REACTIONS (2)
  - Dementia [None]
  - Multiple sclerosis [None]
